FAERS Safety Report 11577640 (Version 1)
Quarter: 2015Q3

REPORT INFORMATION
  Report Type: Spontaneous
  Country: US (occurrence: US)
  Receive Date: 20150930
  Receipt Date: 20150930
  Transmission Date: 20151125
  Serious: Yes (Other)
  Sender: FDA-Public Use
  Company Number: US-009507513-1509USA011549

PATIENT
  Age: 27 Year
  Sex: Female
  Weight: 68.27 kg

DRUGS (1)
  1. NEXPLANON [Suspect]
     Active Substance: ETONOGESTREL
     Indication: CONTRACEPTION
     Dosage: 1 IMPLANT/ 3 YEARS, IN RIGHT ARM
     Route: 059
     Dates: start: 2013

REACTIONS (4)
  - Abortion spontaneous [Unknown]
  - Amenorrhoea [Unknown]
  - Pregnancy with implant contraceptive [Recovered/Resolved]
  - Menstrual disorder [Unknown]

NARRATIVE: CASE EVENT DATE: 2013
